FAERS Safety Report 20794802 (Version 1)
Quarter: 2022Q2

REPORT INFORMATION
  Report Type: Report from Study
  Country: US (occurrence: US)
  Receive Date: 20220506
  Receipt Date: 20220506
  Transmission Date: 20220720
  Serious: Yes (Disabling, Other)
  Sender: FDA-Public Use
  Company Number: US-MYLANLABS-2022M1033258

PATIENT
  Age: 2 Day
  Sex: Female

DRUGS (12)
  1. LIDOCAINE [Suspect]
     Active Substance: LIDOCAINE
     Indication: Long QT syndrome
     Dosage: UNK
     Route: 042
  2. LIDOCAINE [Suspect]
     Active Substance: LIDOCAINE
     Indication: Ventricular fibrillation
  3. LIDOCAINE [Suspect]
     Active Substance: LIDOCAINE
     Indication: Ventricular tachycardia
  4. LIDOCAINE [Suspect]
     Active Substance: LIDOCAINE
     Indication: Torsade de pointes
  5. DILTIAZEM [Concomitant]
     Active Substance: DILTIAZEM
     Indication: Long QT syndrome
     Dosage: UNK
     Route: 065
  6. DILTIAZEM [Concomitant]
     Active Substance: DILTIAZEM
     Indication: Ventricular fibrillation
  7. DILTIAZEM [Concomitant]
     Active Substance: DILTIAZEM
     Indication: Ventricular tachycardia
  8. DILTIAZEM [Concomitant]
     Active Substance: DILTIAZEM
     Indication: Torsade de pointes
  9. RANOLAZINE [Concomitant]
     Active Substance: RANOLAZINE
     Indication: Long QT syndrome
     Dosage: UNK
     Route: 065
  10. RANOLAZINE [Concomitant]
     Active Substance: RANOLAZINE
     Indication: Ventricular fibrillation
  11. RANOLAZINE [Concomitant]
     Active Substance: RANOLAZINE
     Indication: Ventricular tachycardia
  12. RANOLAZINE [Concomitant]
     Active Substance: RANOLAZINE
     Indication: Torsade de pointes

REACTIONS (3)
  - Visual impairment [Unknown]
  - Dizziness [Unknown]
  - Off label use [Unknown]
